FAERS Safety Report 4718933-5 (Version None)
Quarter: 2005Q3

REPORT INFORMATION
  Report Type: 
  Country: None (occurrence: None)
  Receive Date: 20050719
  Receipt Date: 20050706
  Transmission Date: 20060218
  Serious: Yes (Hospitalization)
  Sender: FDA-Public Use
  Company Number: US015571

PATIENT
  Age: 28 Year
  Sex: Female

DRUGS (7)
  1. GABITRIL [Suspect]
     Indication: ANXIETY
     Dosage: 2 MG BID ORAL
     Route: 048
     Dates: start: 20040211, end: 20040101
  2. GABITRIL [Suspect]
     Indication: ANXIETY
     Dosage: 8 MG QD ORAL
     Route: 048
     Dates: start: 20040101, end: 20040313
  3. GABITRIL [Suspect]
     Indication: ANXIETY
     Dosage: 12 MG QD ORAL
     Route: 048
     Dates: start: 20040314, end: 20040316
  4. ZYPREXA [Concomitant]
  5. NEURONTIN [Concomitant]
  6. PERCOCET [Concomitant]
  7. PRILOSEC [Concomitant]

REACTIONS (5)
  - ABNORMAL BEHAVIOUR [None]
  - ACUTE PSYCHOSIS [None]
  - DELIRIUM [None]
  - HALLUCINATION [None]
  - TREMOR [None]
